FAERS Safety Report 5269737-9 (Version None)
Quarter: 2007Q1

REPORT INFORMATION
  Report Type: 
  Country: None (occurrence: None)
  Receive Date: 20070320
  Receipt Date: 20070311
  Transmission Date: 20070707
  Serious: Yes (Other)
  Sender: FDA-Public Use
  Company Number: IL-ROCHE-482214

PATIENT
  Age: 51 Year
  Sex: Female
  Weight: 72 kg

DRUGS (4)
  1. PEGASYS [Suspect]
     Indication: HEPATITIS C VIRUS
     Dosage: STRENGTH AND FORMULATION:180.
     Route: 065
     Dates: start: 20040615, end: 20050615
  2. RIBAVIRIN [Concomitant]
     Dosage: STRENGTH AND FORMULATION:1000.
     Dates: start: 20040615, end: 20050615
  3. RIBAVIRIN [Concomitant]
     Dates: start: 20020615, end: 20030615
  4. 1 CONCOMITANT DRUG [Concomitant]
     Indication: HYPERTHYROIDISM
     Dates: start: 20030615, end: 20050615

REACTIONS (2)
  - HYPERTHYROIDISM [None]
  - PAPILLARY THYROID CANCER [None]
